FAERS Safety Report 6511328-3 (Version None)
Quarter: 2009Q4

REPORT INFORMATION
  Report Type: 
  Country: None (occurrence: None)
  Receive Date: 20091222
  Receipt Date: 20090330
  Transmission Date: 20100525
  Serious: No
  Sender: FDA-Public Use
  Company Number: US-ASTRAZENECA-2009UW08012

PATIENT
  Age: 70 Year
  Sex: Female

DRUGS (14)
  1. CRESTOR [Suspect]
     Indication: BLOOD CHOLESTEROL INCREASED
     Route: 048
     Dates: start: 20090227
  2. CRESTOR [Suspect]
     Dosage: 5 MG
     Route: 048
     Dates: start: 20080301, end: 20090227
  3. NEXIUM [Concomitant]
     Indication: GASTROOESOPHAGEAL REFLUX DISEASE
  4. PREMARIN [Concomitant]
     Indication: HORMONE REPLACEMENT THERAPY
  5. PLAVIX [Concomitant]
  6. AMLODIPINE [Concomitant]
  7. LASIX [Concomitant]
     Indication: HYPERTENSION
  8. JANUVIA [Concomitant]
     Indication: DIABETES MELLITUS
  9. BUPROPION HCL [Concomitant]
  10. HYZAAR [Concomitant]
  11. METFORMIN HCL [Concomitant]
  12. ATENOLOL [Concomitant]
  13. GLIPIZIDE [Concomitant]
  14. ATIVAN [Concomitant]

REACTIONS (1)
  - FLATULENCE [None]
